FAERS Safety Report 14951464 (Version 2)
Quarter: 2018Q2

REPORT INFORMATION
  Report Type: Spontaneous
  Country: ES (occurrence: ES)
  Receive Date: 20180530
  Receipt Date: 20180626
  Transmission Date: 20180711
  Serious: Yes (Death, Hospitalization, Other)
  Sender: FDA-Public Use
  Company Number: ES-009507513-1805ESP013127

PATIENT
  Age: 73 Year
  Sex: Male
  Weight: 89 kg

DRUGS (3)
  1. METFORMIN [Concomitant]
     Active Substance: METFORMIN HYDROCHLORIDE
     Indication: TYPE 2 DIABETES MELLITUS
     Dosage: 850 MG (1TABLET)/12 HOURS (ALSO REPORTED AS ^EVERY 13 HOURS^)
     Route: 048
     Dates: start: 20141003, end: 20180404
  2. PEMBROLIZUMAB. [Suspect]
     Active Substance: PEMBROLIZUMAB
     Indication: METASTATIC MALIGNANT MELANOMA
     Dosage: EVERY 3 WEEKS
     Dates: start: 20170208, end: 20170822
  3. AMLODIPINE BESYLATE (+) HYDROCHLOROTHIAZIDE (+) OLMESARTAN MEDOXOMIL [Concomitant]
     Active Substance: AMLODIPINE BESYLATE\HYDROCHLOROTHIAZIDE\OLMESARTAN MEDOXOMIL
     Indication: HYPERTENSION
     Dosage: 5/25/40, 1 TABLET/24 HOURS (A DAY)
     Route: 048
     Dates: start: 20121220, end: 20180424

REACTIONS (8)
  - Incorrect route of drug administration [Unknown]
  - Therapy partial responder [Unknown]
  - General physical health deterioration [Fatal]
  - Atrial fibrillation [Unknown]
  - Pulmonary sarcoidosis [Recovered/Resolved]
  - Malignant neoplasm progression [Fatal]
  - Cerebral haemorrhage [Recovered/Resolved with Sequelae]
  - Renal failure [Unknown]

NARRATIVE: CASE EVENT DATE: 201702
